FAERS Safety Report 19324563 (Version 1)
Quarter: 2021Q2

REPORT INFORMATION
  Report Type: Spontaneous
  Country: DE (occurrence: DE)
  Receive Date: 20210528
  Receipt Date: 20210528
  Transmission Date: 20210717
  Serious: Yes (Other)
  Sender: FDA-Public Use
  Company Number: DE-GLAXOSMITHKLINE-DE2021EME101122

PATIENT
  Sex: Female

DRUGS (4)
  1. ZEJULA [Suspect]
     Active Substance: NIRAPARIB
     Dosage: UNK
     Dates: start: 20210126, end: 20210318
  2. ZEJULA [Suspect]
     Active Substance: NIRAPARIB
     Indication: PRODUCT USED FOR UNKNOWN INDICATION
     Dosage: UNK
     Dates: start: 20201210, end: 20210112
  3. ZEJULA [Suspect]
     Active Substance: NIRAPARIB
     Dosage: UNK
     Dates: start: 20210113, end: 20210125
  4. ZEJULA [Suspect]
     Active Substance: NIRAPARIB
     Dosage: UNK
     Dates: start: 20210401, end: 20210420

REACTIONS (5)
  - Haemoglobin decreased [Recovered/Resolved]
  - Metastasis [Not Recovered/Not Resolved]
  - Platelet count decreased [Recovered/Resolved]
  - Red blood cell count decreased [Recovered/Resolved]
  - Drug ineffective [Unknown]
